FAERS Safety Report 8603291-6 (Version None)
Quarter: 2012Q3

REPORT INFORMATION
  Report Type: 
  Country: None (occurrence: None)
  Receive Date: 20120817
  Receipt Date: 20120813
  Transmission Date: 20120928
  Serious: Yes (Hospitalization)
  Sender: FDA-Public Use
  Company Number: CA-UCBSA-063674

PATIENT
  Age: 85 Year
  Sex: Female
  Weight: 73.41 kg

DRUGS (18)
  1. HYDROCHLOROTHIAZIDE [Concomitant]
     Indication: HYPERTENSION
     Route: 048
  2. VIT E [Concomitant]
     Indication: VITAMIN SUPPLEMENTATION
     Dosage: 800 U
     Route: 048
  3. CIMZIA [Suspect]
     Indication: RHEUMATOID ARTHRITIS
     Route: 058
     Dates: start: 20110909
  4. PLAVIX [Concomitant]
     Indication: ANTICOAGULANT THERAPY
     Route: 048
  5. ADALAT CC [Concomitant]
     Indication: HYPERTENSION
     Route: 048
  6. LIPITOR [Concomitant]
     Indication: BLOOD CHOLESTEROL
     Dosage: QHS
     Route: 048
  7. MULTI-VITAMIN [Concomitant]
     Indication: VITAMIN SUPPLEMENTATION
     Route: 048
  8. PREDNISONE TAB [Concomitant]
     Indication: RHEUMATOID ARTHRITIS
     Route: 048
     Dates: start: 20100901
  9. DOMPERIDONE [Concomitant]
     Indication: GASTROINTESTINAL DISORDER
     Route: 048
  10. CIMZIA [Suspect]
     Route: 058
     Dates: start: 20110729, end: 20110826
  11. ASPIRIN [Concomitant]
     Indication: ANTICOAGULANT THERAPY
     Route: 048
  12. METFORMIN HYDROCHLORIDE [Concomitant]
     Indication: DIABETES MELLITUS
     Route: 048
  13. TYLENOL [Concomitant]
     Indication: RHEUMATOID ARTHRITIS
     Dosage: 325 MG
     Route: 048
  14. PERINDOPRIL ERBUMINE [Concomitant]
     Indication: HYPERTENSION
     Route: 048
  15. LEVOTHYROXINE SODIUM [Concomitant]
     Indication: THYROIDITIS ACUTE
     Route: 048
  16. PANTOPRAZOLE [Concomitant]
     Indication: GASTROINTESTINAL DISORDER
     Route: 048
  17. VIT C [Concomitant]
     Indication: VITAMIN SUPPLEMENTATION
     Route: 048
  18. TYLENOL [Concomitant]
     Indication: PAIN
     Dosage: 325 MG
     Route: 048

REACTIONS (1)
  - BACTERIAL INFECTION [None]
